FAERS Safety Report 10020715 (Version 2)
Quarter: 2014Q2

REPORT INFORMATION
  Report Type: Spontaneous
  Country: GB (occurrence: GB)
  Receive Date: 20140319
  Receipt Date: 20140610
  Transmission Date: 20141212
  Serious: Yes (Hospitalization)
  Sender: FDA-Public Use
  Company Number: GB-ACCORD-022435

PATIENT
  Age: 9 Year
  Sex: Male

DRUGS (4)
  1. CALCICHEW D3 [Concomitant]
  2. METHOTREXATE [Suspect]
     Indication: CROHN^S DISEASE
     Route: 048
     Dates: start: 20101220, end: 20140121
  3. AZATHIOPRINE [Suspect]
     Indication: CROHN^S DISEASE
     Dosage: LATTERLY, 1G TWICE DAILY
     Route: 048
     Dates: start: 20070628, end: 20100524
  4. FOLIC ACID [Concomitant]

REACTIONS (5)
  - Chloroma [Unknown]
  - Thrombosis [Unknown]
  - Vitamin D deficiency [Unknown]
  - Platelet count decreased [Unknown]
  - Acute myeloid leukaemia [Not Recovered/Not Resolved]
